FAERS Safety Report 9642476 (Version 1)
Quarter: 2013Q4

REPORT INFORMATION
  Report Type: Spontaneous
  Country: US (occurrence: US)
  Receive Date: 20131024
  Receipt Date: 20131024
  Transmission Date: 20140711
  Serious: Yes (Other)
  Sender: FDA-Public Use
  Company Number: US-AMGEN-USASP2013074029

PATIENT
  Age: 53 Year
  Sex: Female

DRUGS (11)
  1. NEULASTA [Suspect]
     Indication: ENDOMETRIAL CANCER
     Dosage: UNK
     Route: 065
  2. CARBOPLATIN [Concomitant]
     Indication: ENDOMETRIAL CANCER
     Dosage: UNK
  3. PACLITAXEL [Concomitant]
     Indication: ENDOMETRIAL CANCER
     Dosage: UNK
  4. FISH OIL [Concomitant]
     Dosage: UNK
  5. MULTIVITAMINS, PLAIN [Concomitant]
     Dosage: UNK
  6. STOOL SOFTENER [Concomitant]
     Dosage: UNK
  7. VITAMIN C                          /00008001/ [Concomitant]
     Dosage: UNK
  8. EMEND                              /01627301/ [Concomitant]
     Dosage: UNK
     Route: 042
  9. ALOXI [Concomitant]
     Dosage: UNK
  10. COMPAZINE                          /00013302/ [Concomitant]
     Dosage: UNK
  11. ZOFRAN                             /00955301/ [Concomitant]
     Dosage: UNK UNK, AS NEEDED

REACTIONS (1)
  - Convulsion [Unknown]
